FAERS Safety Report 6313422-9 (Version None)
Quarter: 2009Q3

REPORT INFORMATION
  Report Type: 
  Country: None (occurrence: None)
  Receive Date: 20090818
  Receipt Date: 20090803
  Transmission Date: 20100115
  Serious: Yes (Hospitalization, Other)
  Sender: FDA-Public Use
  Company Number: GB-NAPPMUNDI-GBR-2009-0005445

PATIENT
  Sex: Female

DRUGS (2)
  1. OXYCONTIN [Suspect]
     Indication: DRUG USE FOR UNKNOWN INDICATION
     Dosage: 640 MG, DAILY
     Route: 064
  2. OXYCONTIN [Suspect]
     Dosage: 240 MG, DAILY
     Route: 064

REACTIONS (1)
  - DRUG DETOXIFICATION [None]
